FAERS Safety Report 7010808-4 (Version None)
Quarter: 2010Q3

REPORT INFORMATION
  Report Type: 
  Country: None (occurrence: None)
  Receive Date: 20100923
  Receipt Date: 20100923
  Transmission Date: 20110219
  Serious: Yes (Hospitalization)
  Sender: FDA-Public Use
  Company Number: None

PATIENT
  Age: 43 Year
  Sex: Female
  Weight: 74.8435 kg

DRUGS (3)
  1. AVASTIN [Suspect]
     Indication: BREAST CANCER METASTATIC
     Dosage: 15 MG/KG EVERY 3 WEEKS IV DRIP
     Route: 041
     Dates: start: 20100713, end: 20100803
  2. HERCEPTIN [Concomitant]
  3. TAXOTERE [Suspect]

REACTIONS (7)
  - CARDIAC VALVE VEGETATION [None]
  - DIARRHOEA [None]
  - EMPYEMA [None]
  - ENDOCARDITIS [None]
  - INTRACARDIAC MASS [None]
  - INTRACARDIAC THROMBUS [None]
  - PYREXIA [None]
